FAERS Safety Report 7707308-2 (Version None)
Quarter: 2011Q3

REPORT INFORMATION
  Report Type: 
  Country: None (occurrence: None)
  Receive Date: 20110824
  Receipt Date: 20110819
  Transmission Date: 20111222
  Serious: Yes (Hospitalization, Other)
  Sender: FDA-Public Use
  Company Number: PHHY2011IE74581

PATIENT
  Age: 44 Year
  Sex: Female

DRUGS (1)
  1. SYNTOMETRINE [Suspect]
     Dosage: 1.0 ML, (ERGOMETRINE 0.5 MG AND PITOCIN 5 IU)
     Route: 030

REACTIONS (9)
  - VOMITING [None]
  - ELECTROCARDIOGRAM T WAVE INVERSION [None]
  - MYOCARDIAL INFARCTION [None]
  - BLOOD LACTATE DEHYDROGENASE INCREASED [None]
  - CHEST PAIN [None]
  - ASPARTATE AMINOTRANSFERASE ABNORMAL [None]
  - ANGINA PECTORIS [None]
  - ALANINE AMINOTRANSFERASE ABNORMAL [None]
  - ELECTROCARDIOGRAM ABNORMAL [None]
